FAERS Safety Report 11146297 (Version 1)
Quarter: 2015Q2

REPORT INFORMATION
  Report Type: Spontaneous
  Country: US (occurrence: US)
  Receive Date: 20150528
  Receipt Date: 20150528
  Transmission Date: 20150821
  Serious: Yes (Other)
  Sender: FDA-Public Use
  Company Number: PHHY2014US096112

PATIENT
  Age: 51 Year
  Sex: Male

DRUGS (1)
  1. HYDROCHLOROTHIAZIDE,METOPROLOL TARTRATE [Suspect]
     Active Substance: HYDROCHLOROTHIAZIDE\METOPROLOL TARTRATE
     Indication: PRODUCT USED FOR UNKNOWN INDICATION
     Route: 065

REACTIONS (11)
  - Palmoplantar keratoderma [Recovered/Resolved]
  - Lymphadenopathy [Recovered/Resolved]
  - Dermatitis exfoliative [Recovered/Resolved]
  - Skin hyperpigmentation [Recovered/Resolved]
  - Rash erythematous [Recovered/Resolved]
  - Pruritus [Recovered/Resolved]
  - Papule [Recovered/Resolved]
  - Skin plaque [Recovered/Resolved]
  - Mycosis fungoides [Recovered/Resolved]
  - Skin exfoliation [Recovered/Resolved]
  - Skin fissures [Recovered/Resolved]
